FAERS Safety Report 7367640-1 (Version None)
Quarter: 2011Q1

REPORT INFORMATION
  Report Type: 
  Country: None (occurrence: None)
  Receive Date: 20110322
  Receipt Date: 20100730
  Transmission Date: 20110831
  Serious: Yes (Hospitalization, Other)
  Sender: FDA-Public Use
  Company Number: US-BAYER-201020792NA

PATIENT
  Sex: Female
  Weight: 63.492 kg

DRUGS (3)
  1. TUMS [CALCIUM CARBONATE] [Concomitant]
     Dosage: UNK
     Dates: start: 20080301
  2. YASMIN [Suspect]
     Indication: CONTRACEPTION
     Dosage: UNK UNK, UNK
     Route: 048
     Dates: start: 20050601, end: 20080401
  3. VICODIN [Concomitant]
     Dosage: UNK
     Dates: start: 20080301

REACTIONS (7)
  - ABDOMINAL PAIN [None]
  - GALLBLADDER CHOLESTEROLOSIS [None]
  - CHEST PAIN [None]
  - GALLBLADDER DISORDER [None]
  - CHOLELITHIASIS [None]
  - CHOLECYSTITIS CHRONIC [None]
  - ABDOMINAL PAIN UPPER [None]
